APPROVED DRUG PRODUCT: PHENTERMINE HYDROCHLORIDE
Active Ingredient: PHENTERMINE HYDROCHLORIDE
Strength: 30MG
Dosage Form/Route: CAPSULE;ORAL
Application: A040227 | Product #001
Applicant: ELITE LABORATORIES INC
Approved: Jun 18, 1997 | RLD: No | RS: No | Type: DISCN